FAERS Safety Report 9330708 (Version 2)
Quarter: 2013Q3

REPORT INFORMATION
  Report Type: Spontaneous
  Country: FR (occurrence: FR)
  Receive Date: 20130605
  Receipt Date: 20130701
  Transmission Date: 20140515
  Serious: Yes (Hospitalization)
  Sender: FDA-Public Use
  Company Number: FR-NOVOPROD-379229

PATIENT
  Age: 59 Year
  Sex: Female

DRUGS (17)
  1. VICTOZA [Suspect]
     Indication: TYPE 2 DIABETES MELLITUS
     Dosage: 1.2 MG, QD
     Route: 058
     Dates: start: 201303, end: 20130322
  2. FERINJECT [Suspect]
     Dosage: 50 MG/ML
     Route: 042
     Dates: start: 20130304, end: 20130308
  3. NOVORAPID [Concomitant]
     Indication: TYPE 2 DIABETES MELLITUS
     Dates: start: 201303
  4. LANTUS [Concomitant]
     Dates: start: 201303
  5. GLIMEPIRIDE [Concomitant]
     Dates: start: 201303
  6. STAGID [Concomitant]
     Dosage: 700 MG
  7. COAPROVEL [Concomitant]
  8. KARDEGIC [Concomitant]
  9. INIPOMP [Concomitant]
  10. MONOTILDIEM [Concomitant]
  11. LYRICA [Concomitant]
  12. TAHOR [Concomitant]
  13. TARDYFERON [Concomitant]
  14. AERIUS                             /01009701/ [Concomitant]
  15. DOLIPRANE [Concomitant]
  16. SYMBICORT [Concomitant]
  17. PREVISCAN                          /00261401/ [Concomitant]
     Dosage: 20 MG

REACTIONS (2)
  - Skin hyperpigmentation [Recovering/Resolving]
  - Gastrointestinal disorder [Unknown]
